FAERS Safety Report 5680544-5 (Version None)
Quarter: 2008Q1

REPORT INFORMATION
  Report Type: 
  Country: None (occurrence: None)
  Receive Date: 20080326
  Receipt Date: 20080324
  Transmission Date: 20080703
  Serious: Yes (Hospitalization)
  Sender: FDA-Public Use
  Company Number: US-MERCK-0802USA06261

PATIENT
  Age: 77 Year
  Sex: Female
  Weight: 65 kg

DRUGS (14)
  1. JANUVIA [Suspect]
     Indication: TYPE 2 DIABETES MELLITUS
     Route: 048
     Dates: start: 20080101, end: 20080208
  2. K-DUR 10 [Concomitant]
     Route: 065
  3. LASIX [Concomitant]
     Route: 065
  4. COUMADIN [Concomitant]
     Route: 065
  5. PREVACID [Concomitant]
     Route: 065
  6. MARINOL [Concomitant]
     Route: 065
  7. REGLAN [Concomitant]
     Route: 065
  8. SINGULAIR [Concomitant]
     Route: 048
  9. PROZAC [Concomitant]
     Route: 065
  10. DIGOXIN [Concomitant]
     Route: 065
  11. LEVOTHYROXINE SODIUM [Concomitant]
     Route: 065
  12. ALDACTONE [Concomitant]
     Route: 065
  13. XANAX [Concomitant]
     Route: 065
  14. PERIACTIN [Concomitant]
     Route: 048

REACTIONS (1)
  - PRURITUS [None]
